FAERS Safety Report 20142996 (Version 2)
Quarter: 2021Q4

REPORT INFORMATION
  Report Type: Spontaneous
  Country: DE (occurrence: None)
  Receive Date: 20211202
  Receipt Date: 20211222
  Transmission Date: 20220303
  Serious: Yes (Hospitalization, Other)
  Sender: FDA-Public Use
  Company Number: 2021A836946

PATIENT
  Age: 83 Year
  Sex: Female
  Weight: 69 kg

DRUGS (24)
  1. QUETIAPINE [Suspect]
     Active Substance: QUETIAPINE
     Indication: Depression
     Dosage: 0-0-0-1
     Route: 048
     Dates: end: 20211119
  2. CITALOPRAM [Suspect]
     Active Substance: CITALOPRAM HYDROBROMIDE
     Indication: Depression
     Dosage: 1-0-0
     Route: 048
  3. CITALOPRAM [Suspect]
     Active Substance: CITALOPRAM HYDROBROMIDE
     Indication: Depression
     Dosage: 1 1/2
     Route: 048
     Dates: start: 20211119
  4. FENTANYL [Suspect]
     Active Substance: FENTANYL
     Indication: Scoliosis
     Dosage: CHANGE 12.5 UG / H EVERY 3 DAYS1.0DF UNKNOWN
     Route: 062
  5. MIRTAZAPINE [Suspect]
     Active Substance: MIRTAZAPINE
     Indication: Depression
     Dosage: 0-0-0-2
     Route: 048
     Dates: end: 202111
  6. MIRTAZAPINE [Suspect]
     Active Substance: MIRTAZAPINE
     Indication: Depression
     Dosage: INCREASED TO 45MG PER NIGHT FROM NOVEMBER 2021
     Route: 048
     Dates: start: 20211119
  7. FUROSEMIDE [Concomitant]
     Active Substance: FUROSEMIDE
     Dosage: 1/2-0-0 (BEI ??DEMEN IN DEN BEINEN ZUS??TZLICH 1/2 TABLETTE EINNEHMEN)
  8. ALENDRONS??URE AUROBINDO [Concomitant]
     Dosage: 1X W??CHENTLICH SAMSTAGS
     Route: 048
  9. CLOPIDOGREL [Concomitant]
     Active Substance: CLOPIDOGREL BISULFATE
     Indication: Coronary artery disease
     Dosage: 0.5-0-0
     Route: 048
  10. CLOPIDOGREL [Concomitant]
     Active Substance: CLOPIDOGREL BISULFATE
     Indication: Coronary arterial stent insertion
     Dosage: 0.5-0-0
     Route: 048
  11. PANTOPRAZOLE SODIUM [Concomitant]
     Active Substance: PANTOPRAZOLE SODIUM
     Dosage: 2-0-0
     Dates: end: 202111
  12. PANTOPRAZOLE SODIUM [Concomitant]
     Active Substance: PANTOPRAZOLE SODIUM
     Dosage: 1 TABLET
     Dates: start: 202112
  13. ASPIRIN [Concomitant]
     Active Substance: ASPIRIN
     Dosage: 0-1-0
  14. BRIMONIDIN [Concomitant]
     Dosage: 1-0-1 BEIDE AUGEN, 5 MIN. NACH BRINZO
  15. NITROGLYCERIN [Concomitant]
     Active Substance: NITROGLYCERIN
     Indication: Chest discomfort
  16. NITROGLYCERIN [Concomitant]
     Active Substance: NITROGLYCERIN
     Indication: Prophylaxis
  17. AMLODIPINE\VALSARTAN [Concomitant]
     Active Substance: AMLODIPINE\VALSARTAN
     Dosage: 1-0-1
  18. VIGANTOL [Concomitant]
     Dosage: 0-0-1-0
  19. NEBIVOLOL [Concomitant]
     Active Substance: NEBIVOLOL
     Indication: Coronary arterial stent insertion
     Dosage: 1/4-0-0
  20. TIMOLOL MALEATE\TRAVOPROST [Concomitant]
     Active Substance: TIMOLOL MALEATE\TRAVOPROST
     Dosage: 0-0-1 BOTH EYES, 5 MIN. AFTER BRIMONIDINE
  21. ATORVASTATIN [Concomitant]
     Active Substance: ATORVASTATIN
     Dosage: 0-0-1
  22. BRINZO VISION [Concomitant]
     Dosage: 1-0-1 BOTH EYES
  23. IODINE [Concomitant]
     Active Substance: IODINE
     Dosage: 1-0-0200UG/INHAL DAILY
  24. KALINOR [Concomitant]
     Dosage: FROM NOVEMBER 19, 2021 FIRST TABLE SET FROM MORNING TO NOON

REACTIONS (16)
  - Blood pressure fluctuation [Recovering/Resolving]
  - Cholestasis [Recovering/Resolving]
  - Constipation [Recovering/Resolving]
  - Chills [Not Recovered/Not Resolved]
  - Decreased appetite [Recovering/Resolving]
  - Gait disturbance [Recovering/Resolving]
  - Cholestasis [Recovering/Resolving]
  - Weight decreased [Recovering/Resolving]
  - Feeling cold [Recovering/Resolving]
  - Hepatocellular injury [Recovering/Resolving]
  - Urinary tract infection [Recovering/Resolving]
  - Hypotonia [Recovering/Resolving]
  - Night sweats [Not Recovered/Not Resolved]
  - General physical health deterioration [Recovering/Resolving]
  - Dry eye [Recovering/Resolving]
  - Dry mouth [Recovering/Resolving]

NARRATIVE: CASE EVENT DATE: 20210101
